FAERS Safety Report 7206228-X (Version None)
Quarter: 2011Q1

REPORT INFORMATION
  Report Type: 
  Country: None (occurrence: None)
  Receive Date: 20110103
  Receipt Date: 20101229
  Transmission Date: 20110831
  Serious: Yes (Death)
  Sender: FDA-Public Use
  Company Number: MX-SANOFI-AVENTIS-2011SA000001

PATIENT
  Age: 77 Year
  Sex: Male

DRUGS (2)
  1. NICARDIPINE HYDROCHLORIDE [Concomitant]
     Route: 048
     Dates: end: 20100101
  2. XATRAL OD [Suspect]
     Indication: BENIGN PROSTATIC HYPERPLASIA
     Route: 048
     Dates: start: 20080101, end: 20100101

REACTIONS (2)
  - RENAL FAILURE CHRONIC [None]
  - MULTI-ORGAN FAILURE [None]
